FAERS Safety Report 14073144 (Version 1)
Quarter: 2017Q4

REPORT INFORMATION
  Report Type: Spontaneous
  Country: US (occurrence: US)
  Receive Date: 20171011
  Receipt Date: 20171011
  Transmission Date: 20180321
  Serious: Yes (Other)
  Sender: FDA-Public Use
  Company Number: US-BAYER-2017-156399

PATIENT

DRUGS (1)
  1. ALKA-SELTZER GOLD [Suspect]
     Active Substance: ANHYDROUS CITRIC ACID\POTASSIUM BICARBONATE\SODIUM BICARBONATE
     Dosage: UNK UNK, QD
     Route: 065

REACTIONS (2)
  - Drug dependence [Unknown]
  - Incorrect drug administration duration [Unknown]
